FAERS Safety Report 5750139-3 (Version None)
Quarter: 2008Q2

REPORT INFORMATION
  Report Type: 
  Country: None (occurrence: None)
  Receive Date: 20080527
  Receipt Date: 20080519
  Transmission Date: 20081010
  Serious: Yes (Other)
  Sender: FDA-Public Use
  Company Number: US-JNJFOC-20080504189

PATIENT
  Sex: Male
  Weight: 86.18 kg

DRUGS (6)
  1. REMICADE [Suspect]
     Indication: PSORIATIC ARTHROPATHY
     Dosage: 8INFUSIONS OVER LAST 10MONTHS
     Route: 042
  2. OXYCODONE HCL [Concomitant]
     Indication: PAIN
     Dosage: Q4-6H
  3. ATIVAN [Concomitant]
     Indication: SLEEP DISORDER
  4. ZOLOFT [Concomitant]
     Indication: DEPRESSION
  5. VALIUM [Concomitant]
     Indication: ANXIETY
  6. FENTANYL [Concomitant]
     Indication: PAIN

REACTIONS (9)
  - DEPRESSION [None]
  - DRUG INEFFECTIVE [None]
  - FATIGUE [None]
  - HEADACHE [None]
  - MUSCULAR WEAKNESS [None]
  - NAUSEA [None]
  - PAIN [None]
  - TREMOR [None]
  - VOMITING [None]
